FAERS Safety Report 12806155 (Version 1)
Quarter: 2016Q4

REPORT INFORMATION
  Report Type: Spontaneous
  Country: GB (occurrence: GB)
  Receive Date: 20161004
  Receipt Date: 20161004
  Transmission Date: 20170207
  Serious: Yes (Other)
  Sender: FDA-Public Use
  Company Number: GB-TEVA-697782ACC

PATIENT
  Sex: Female

DRUGS (2)
  1. TOPIRAMATE. [Suspect]
     Active Substance: TOPIRAMATE
     Indication: ESSENTIAL TREMOR
     Dosage: AT NIGHT
     Route: 048
  2. TOPIRAMATE. [Suspect]
     Active Substance: TOPIRAMATE
     Dosage: 200 MILLIGRAM DAILY;
     Route: 048

REACTIONS (3)
  - Anal incontinence [Unknown]
  - Pruritus [Unknown]
  - Age-related macular degeneration [Unknown]
